FAERS Safety Report 6901644-5 (Version None)
Quarter: 2010Q3

REPORT INFORMATION
  Report Type: 
  Country: None (occurrence: None)
  Receive Date: 20100803
  Receipt Date: 20080217
  Transmission Date: 20110219
  Serious: Yes (Other)
  Sender: FDA-Public Use
  Company Number: US-PFIZER INC-2008015122

PATIENT
  Sex: Female
  Weight: 81.818 kg

DRUGS (4)
  1. LYRICA [Suspect]
     Indication: CARPAL TUNNEL SYNDROME
     Dosage: EVERYDAY
     Route: 048
     Dates: start: 20080207
  2. LISINOPRIL [Concomitant]
  3. NEXIUM [Concomitant]
  4. FUROSEMIDE [Concomitant]

REACTIONS (3)
  - GAIT DISTURBANCE [None]
  - PAIN [None]
  - SWELLING [None]
